FAERS Safety Report 5713382-5 (Version None)
Quarter: 2008Q2

REPORT INFORMATION
  Report Type: 
  Country: None (occurrence: None)
  Receive Date: 20080422
  Receipt Date: 20080418
  Transmission Date: 20081010
  Serious: Yes (Hospitalization)
  Sender: FDA-Public Use
  Company Number: FR-WYE-G01424308

PATIENT
  Sex: Male

DRUGS (4)
  1. ADVIL [Suspect]
     Indication: INFLUENZA LIKE ILLNESS
     Route: 048
     Dates: start: 20080209, end: 20080210
  2. VENTOLIN [Concomitant]
     Indication: ASTHMATIC CRISIS
     Route: 048
     Dates: start: 20080209, end: 20080209
  3. ASPIRINE VITAMIN C [Concomitant]
     Dosage: ONE SINGLE DOSE
     Route: 048
     Dates: start: 20080209, end: 20080209
  4. PARACETAMOL [Concomitant]
     Dosage: ONE SINGLE DOSE OF 1 G
     Route: 048
     Dates: start: 20080205, end: 20080205

REACTIONS (7)
  - CHEILITIS [None]
  - CUTANEOUS VASCULITIS [None]
  - ECZEMA [None]
  - GLOSSITIS [None]
  - HYPERKERATOSIS PALMARIS AND PLANTARIS [None]
  - PARAESTHESIA [None]
  - URTICARIA [None]
